FAERS Safety Report 9068514 (Version 1)
Quarter: 2013Q3

REPORT INFORMATION
  Report Type: Spontaneous
  Country: US (occurrence: None)
  Receive Date: 20130212
  Receipt Date: 20130212
  Transmission Date: 20140515
  Serious: Yes (Other)
  Sender: FDA-Public Use
  Company Number: None

PATIENT
  Age: 36 Year
  Sex: Female

DRUGS (23)
  1. CRESTOR [Suspect]
     Indication: ACUTE RESPIRATORY DISTRESS SYNDROME
     Dosage: PG (SINGLE DOSE)
     Route: 048
     Dates: start: 20130124
  2. CRESTOR [Suspect]
     Indication: SEPSIS
     Dosage: PG (SINGLE DOSE)
     Route: 048
     Dates: start: 20130124
  3. CRESTOR [Suspect]
     Indication: ACUTE RESPIRATORY DISTRESS SYNDROME
     Dosage: 10 OR 20MG ORAL/PG OD
     Dates: start: 20130125, end: 20130131
  4. CRESTOR [Suspect]
     Indication: SEPSIS
     Dosage: 10 OR 20MG ORAL/PG OD
     Dates: start: 20130125, end: 20130131
  5. AZITHROMYCIN [Concomitant]
  6. LEVOFLOXIN [Concomitant]
  7. MEROPENEM [Concomitant]
  8. PIPERACILLIN-TAZOBACTAM [Concomitant]
  9. VANCOMYCIN [Suspect]
  10. FUROSEMIDE [Concomitant]
  11. ACETAMINOPHEN [Concomitant]
  12. ADENOSINE [Concomitant]
  13. CHLOROTHIAZIDE [Concomitant]
  14. EPOPROSTENOL INHALATION [Concomitant]
  15. FENTANYL [Concomitant]
  16. FLUCONAZOLE [Concomitant]
  17. HALOPERIDOL LACTATE [Concomitant]
  18. HEPARIN [Concomitant]
  19. INSULIN [Concomitant]
  20. METHYLPREDNISOLONE [Concomitant]
  21. OMEPRAZOLE [Concomitant]
  22. ONDANSETRON [Concomitant]
  23. POLYCTHYLENE MIRALAX [Concomitant]

REACTIONS (2)
  - Pyrexia [None]
  - Clostridium test positive [None]
